FAERS Safety Report 5645567-0 (Version None)
Quarter: 2008Q1

REPORT INFORMATION
  Report Type: 
  Country: None (occurrence: None)
  Receive Date: 20080229
  Receipt Date: 20080221
  Transmission Date: 20080703
  Serious: Yes (Hospitalization)
  Sender: FDA-Public Use
  Company Number: GB-BAYER-200810339BNE

PATIENT
  Age: 62 Year
  Sex: Male

DRUGS (2)
  1. ULTRAVIST 300 [Suspect]
     Indication: DRUG USE FOR UNKNOWN INDICATION
     Dates: start: 20080121, end: 20080121
  2. PROBABLE CYTOTXIC CHEMOTHERAPY [Concomitant]

REACTIONS (6)
  - ANAPHYLACTIC SHOCK [None]
  - ERYTHEMA [None]
  - HYPOTENSION [None]
  - NAUSEA [None]
  - URTICARIA [None]
  - VOMITING [None]
